FAERS Safety Report 11324167 (Version 1)
Quarter: 2015Q3

REPORT INFORMATION
  Report Type: Report from Study
  Country: US (occurrence: US)
  Receive Date: 20150730
  Receipt Date: 20150730
  Transmission Date: 20151125
  Serious: Yes (Death)
  Sender: FDA-Public Use
  Company Number: US-ASTRAZENECA-2014SE31800

PATIENT
  Age: 85 Year
  Sex: Male

DRUGS (1)
  1. PULMICORT FLEXHALER [Suspect]
     Active Substance: BUDESONIDE
     Dosage: 2 PUFFS BID
     Route: 055

REACTIONS (3)
  - Death [Fatal]
  - Memory impairment [Unknown]
  - Hearing impaired [Unknown]

NARRATIVE: CASE EVENT DATE: 20150707
